FAERS Safety Report 5809628-5 (Version None)
Quarter: 2008Q3

REPORT INFORMATION
  Report Type: 
  Country: None (occurrence: None)
  Receive Date: 20080711
  Receipt Date: 20080711
  Transmission Date: 20090109
  Serious: No
  Sender: FDA-Public Use
  Company Number: None

PATIENT
  Age: 61 Year
  Sex: Female
  Weight: 59.8748 kg

DRUGS (6)
  1. LIPITOR [Suspect]
     Indication: BLOOD CHOLESTEROL INCREASED
     Dosage: 20 MG/DAILY PO
     Route: 048
     Dates: start: 20010110, end: 20080610
  2. LUNESTA [Suspect]
     Indication: INSOMNIA
     Dosage: 1 MG/PM PO
     Route: 048
     Dates: start: 20080706, end: 20080708
  3. CEFTIN [Concomitant]
  4. BIAXIN [Concomitant]
  5. EFFEXOR [Concomitant]
  6. AMITRYPTALINE [Concomitant]

REACTIONS (6)
  - ARTHRALGIA [None]
  - BACK PAIN [None]
  - LYME DISEASE [None]
  - MYOSITIS [None]
  - PAIN [None]
  - PARAESTHESIA [None]
